FAERS Safety Report 18970621 (Version 1)
Quarter: 2021Q1

REPORT INFORMATION
  Report Type: Spontaneous
  Country: CA (occurrence: CA)
  Receive Date: 20210304
  Receipt Date: 20210304
  Transmission Date: 20210420
  Serious: Yes (Hospitalization)
  Sender: FDA-Public Use
  Company Number: CA-VERTEX PHARMACEUTICALS-2021-003473

PATIENT
  Sex: Female

DRUGS (3)
  1. PULMOZYME [Interacting]
     Active Substance: DORNASE ALFA
     Indication: CYSTIC FIBROSIS
     Dosage: 1 MG/ML, SOLUTION INHALATION
  2. ORKAMBI [Suspect]
     Active Substance: IVACAFTOR\LUMACAFTOR
     Indication: CYSTIC FIBROSIS
     Route: 048
  3. COLISTIN [Interacting]
     Active Substance: COLISTIN
     Indication: PRODUCT USED FOR UNKNOWN INDICATION

REACTIONS (6)
  - Aphonia [Recovered/Resolved]
  - Drug hypersensitivity [Recovered/Resolved]
  - Drug interaction [Recovered/Resolved]
  - Pneumonia pseudomonal [Recovered/Resolved]
  - Cough [Recovered/Resolved]
  - Throat irritation [Recovered/Resolved]
